FAERS Safety Report 5034274-3 (Version None)
Quarter: 2006Q2

REPORT INFORMATION
  Report Type: 
  Country: None (occurrence: None)
  Receive Date: 20060626
  Receipt Date: 20060614
  Transmission Date: 20061013
  Serious: Yes (Disabling)
  Sender: FDA-Public Use
  Company Number: PHFR2006GB02058

PATIENT
  Sex: Male

DRUGS (2)
  1. DICLOFENAC SODIUM [Suspect]
     Indication: OSTEOARTHRITIS
     Dates: start: 19870101, end: 20040101
  2. DICLOFENAC SODIUM [Suspect]
     Dates: start: 20041001, end: 20041001

REACTIONS (13)
  - CHEST PAIN [None]
  - CONFUSIONAL STATE [None]
  - DIPLOPIA [None]
  - DISORIENTATION [None]
  - DISTURBANCE IN ATTENTION [None]
  - DIZZINESS [None]
  - FEELING ABNORMAL [None]
  - HEADACHE [None]
  - NIGHTMARE [None]
  - RETROGRADE AMNESIA [None]
  - SLEEP DISORDER [None]
  - SOMNOLENCE [None]
  - VISION BLURRED [None]
